FAERS Safety Report 10224472 (Version 2)
Quarter: 2014Q2

REPORT INFORMATION
  Report Type: Spontaneous
  Country: US (occurrence: US)
  Receive Date: 20140609
  Receipt Date: 20140609
  Transmission Date: 20141212
  Serious: Yes (Hospitalization)
  Sender: FDA-Public Use
  Company Number: US-SA-FLUD-1001572

PATIENT
  Age: 79 Year
  Sex: Male

DRUGS (3)
  1. FLUDARA [Suspect]
     Indication: CHRONIC LYMPHOCYTIC LEUKAEMIA
     Dosage: 53 MG, QD, FOR DAYS 1 AND 2
     Route: 042
     Dates: start: 20120702, end: 20120703
  2. RITUXAN [Suspect]
     Indication: CHRONIC LYMPHOCYTIC LEUKAEMIA
     Dosage: 1065 MG, QD, FOR DAY 1
     Route: 042
     Dates: start: 20120702, end: 20120702
  3. CYTOXAN [Suspect]
     Indication: CHRONIC LYMPHOCYTIC LEUKAEMIA
     Dosage: 530 MG, QD FOR DAYS 1 AND 2
     Route: 042
     Dates: start: 20120702, end: 20120703

REACTIONS (3)
  - Febrile neutropenia [Unknown]
  - Pyrexia [Recovered/Resolved]
  - Pancytopenia [Unknown]
